FAERS Safety Report 4743592-5 (Version None)
Quarter: 2005Q3

REPORT INFORMATION
  Report Type: 
  Country: None (occurrence: None)
  Receive Date: 20050810
  Receipt Date: 20050810
  Transmission Date: 20060218
  Serious: Yes (Hospitalization)
  Sender: FDA-Public Use
  Company Number: None

PATIENT
  Age: 71 Year
  Sex: Male
  Weight: 83.6 kg

DRUGS (15)
  1. LISINOPRIL [Suspect]
     Indication: HYPERTENSION
     Dosage: ONE PO DAILY
     Route: 048
     Dates: start: 19980326
  2. RANITIDINE HCL [Concomitant]
  3. PROPRANOLOL HYDROCHLORIDE [Concomitant]
  4. HUMULIN N [Concomitant]
  5. NOVOLIN N [Concomitant]
  6. CROMOLYN SODIUM [Concomitant]
  7. SIMVASTATIN [Concomitant]
  8. FELODIPINE [Concomitant]
  9. HYDROCHLOROTHIAZIDE [Concomitant]
  10. HUMULIN R [Concomitant]
  11. NOVOLIN R [Concomitant]
  12. PANCRELIPASE [Concomitant]
  13. SERTRALINE HCL [Concomitant]
  14. VANICREAM TOP CREAM [Concomitant]
  15. OXYCODONE HCL [Concomitant]

REACTIONS (12)
  - ACUTE PRERENAL FAILURE [None]
  - BENIGN PROSTATIC HYPERPLASIA [None]
  - HAEMODIALYSIS [None]
  - HYPOVOLAEMIA [None]
  - MENTAL STATUS CHANGES [None]
  - MYOCLONUS [None]
  - NAUSEA [None]
  - OLIGURIA [None]
  - ORAL INTAKE REDUCED [None]
  - RENAL CYST [None]
  - RENAL FAILURE ACUTE [None]
  - VOMITING [None]
